FAERS Safety Report 4781336-1 (Version None)
Quarter: 2005Q3

REPORT INFORMATION
  Report Type: 
  Country: None (occurrence: None)
  Receive Date: 20050914
  Receipt Date: 20050803
  Transmission Date: 20060218
  Serious: No
  Sender: FDA-Public Use
  Company Number: IND-AE-05-SAN-050

PATIENT
  Age: 24 Year
  Sex: Female

DRUGS (3)
  1. SANCTURA [Suspect]
     Indication: HYPERTONIC BLADDER
     Dosage: ORAL
     Route: 048
  2. ZYRTEC [Concomitant]
  3. ALESSE (ETHINYLESTRADIOL) [Concomitant]

REACTIONS (4)
  - ANHIDROSIS [None]
  - DIZZINESS [None]
  - FLUSHING [None]
  - NAUSEA [None]
